FAERS Safety Report 19546278 (Version 2)
Quarter: 2021Q3

REPORT INFORMATION
  Report Type: Spontaneous
  Country: TR (occurrence: TR)
  Receive Date: 20210714
  Receipt Date: 20210723
  Transmission Date: 20211014
  Serious: Yes (Hospitalization, Other)
  Sender: FDA-Public Use
  Company Number: TR-ACCORD-231760

PATIENT
  Age: 14 Year
  Sex: Male

DRUGS (2)
  1. AMPICILLIN SODIUM/SULBACTAM SODIUM [Concomitant]
     Active Substance: AMPICILLIN SODIUM\SULBACTAM SODIUM
     Indication: UPPER RESPIRATORY TRACT INFECTION
  2. SERTRALINE [Suspect]
     Active Substance: SERTRALINE HYDROCHLORIDE
     Indication: ANXIETY
     Dosage: 50 MG/DAY

REACTIONS (1)
  - Arteriospasm coronary [Recovered/Resolved]
